FAERS Safety Report 8641127 (Version 2)
Quarter: 2012Q4

REPORT INFORMATION
  Report Type: Spontaneous
  Country: DK (occurrence: None)
  Receive Date: 20120613
  Receipt Date: 20120914
  Transmission Date: 20130627
  Serious: Yes (Life-Threatening, Hospitalization, Other)
  Sender: FDA-Public Use
  Company Number: 217713

PATIENT
  Age: 61 Year
  Sex: Female

DRUGS (6)
  1. INNOHEP [Suspect]
     Indication: THROMBOSIS PROPHYLAXIS
     Dosage: 3500 ie x 1, Strength: 10.000 anti-Xa IE/ml, Subcutaneous
     Dates: start: 20120507
  2. ZOLPIDEM TARTRAT (ZOLPIDEM TARTRATE) [Concomitant]
  3. PINEX (PARACETAMOL) [Concomitant]
  4. EUTHYROX (LEVOTHYROXINE SODIUM) [Concomitant]
  5. BRUFEN (IBUPROFEN) [Concomitant]
  6. PANTOPRAZOL ^ACTAVIS^ (PANTOPRAZOLE SODIUM) [Concomitant]

REACTIONS (5)
  - Pulmonary embolism [None]
  - Drug ineffective [None]
  - Product quality issue [None]
  - Hyperventilation [None]
  - Loss of consciousness [None]
